FAERS Safety Report 9135712 (Version 4)
Quarter: 2013Q2

REPORT INFORMATION
  Report Type: Spontaneous
  Country: FR (occurrence: FR)
  Receive Date: 20130304
  Receipt Date: 20130513
  Transmission Date: 20140414
  Serious: Yes (Hospitalization, Other)
  Sender: FDA-Public Use
  Company Number: FR-PFIZER INC-2013070164

PATIENT
  Age: 73 Year
  Sex: Female

DRUGS (9)
  1. TAHOR [Suspect]
     Dosage: 10 MG, DAILY
     Route: 048
     Dates: start: 2003, end: 201208
  2. TAHOR [Suspect]
     Dosage: 40 MG, DAILY
     Route: 048
     Dates: start: 201208, end: 20121122
  3. COAPROVEL [Concomitant]
     Dosage: HYDROCHLOROTHIAZIDE 25, NO UNITS PROVIDED/IRBESARTAN 300, NO UNITS PROVIDED
     Route: 048
  4. LERCAN [Concomitant]
     Dosage: 20 MG, DAILY
     Route: 048
  5. BISOCE [Concomitant]
     Dosage: 10 MG, DAILY
     Route: 048
  6. GLUCOPHAGE [Concomitant]
     Dosage: 1000 MG, 2X/DAY
     Route: 048
  7. AMAREL [Concomitant]
     Dosage: 2 MG, 1X/DAY
     Route: 048
  8. LANTUS [Concomitant]
     Dosage: 8 IU, DAILY
     Route: 058
  9. ZYLORIC [Concomitant]
     Dosage: 200 MG, DAILY
     Route: 048

REACTIONS (12)
  - Autoimmune disorder [Not Recovered/Not Resolved]
  - Hepatocellular injury [Recovering/Resolving]
  - Aspartate aminotransferase increased [Unknown]
  - Alanine aminotransferase increased [Unknown]
  - Blood creatine phosphokinase increased [Unknown]
  - Loss of consciousness [Unknown]
  - Gait disturbance [Unknown]
  - Rhabdomyolysis [Unknown]
  - Neuralgic amyotrophy [Unknown]
  - Myalgia [Recovered/Resolved]
  - Pain [Unknown]
  - Malaise [Unknown]
